APPROVED DRUG PRODUCT: ERGOSTAT
Active Ingredient: ERGOTAMINE TARTRATE
Strength: 2MG
Dosage Form/Route: TABLET;SUBLINGUAL
Application: A088337 | Product #001
Applicant: WATSON LABORATORIES INC
Approved: Jun 8, 1984 | RLD: No | RS: No | Type: DISCN